FAERS Safety Report 9842291 (Version 2)
Quarter: 2014Q1

REPORT INFORMATION
  Report Type: Spontaneous
  Country: US (occurrence: US)
  Receive Date: 20140124
  Receipt Date: 20140124
  Transmission Date: 20141002
  Serious: Yes (Hospitalization)
  Sender: FDA-Public Use
  Company Number: US-B.I. PHARMACEUTICALS,INC./RIDGEFIELD-2013-BI-26529BP

PATIENT
  Age: 71 Year
  Sex: Male
  Weight: 95.25 kg

DRUGS (1)
  1. PRADAXA [Suspect]
     Indication: ATRIAL FIBRILLATION
     Dates: start: 20110224, end: 20110407

REACTIONS (3)
  - Peritoneal haemorrhage [Unknown]
  - Shock haemorrhagic [Unknown]
  - Splenic injury [Unknown]
